FAERS Safety Report 6168397-2 (Version None)
Quarter: 2009Q2

REPORT INFORMATION
  Report Type: 
  Country: None (occurrence: None)
  Receive Date: 20090427
  Receipt Date: 20090422
  Transmission Date: 20091009
  Serious: Yes (Death, Hospitalization, Other)
  Sender: FDA-Public Use
  Company Number: FR-BRISTOL-MYERS SQUIBB COMPANY-14517569

PATIENT
  Age: 60 Year
  Sex: Male

DRUGS (7)
  1. BICNU [Suspect]
     Indication: LYMPHOMA
     Route: 042
     Dates: start: 20080815
  2. ETOPOSIDE [Suspect]
     Indication: LYMPHOMA
     Route: 042
     Dates: start: 20080816, end: 20080819
  3. CYTARABINE [Suspect]
     Indication: LYMPHOMA
     Dosage: 1DOSAGE FORM=1.6G/M2
     Dates: start: 20080816, end: 20080819
  4. MELPHALAN [Suspect]
     Indication: LYMPHOMA
     Route: 042
     Dates: start: 20080820
  5. CISPLATIN [Suspect]
     Dosage: 3 COURSES STOPPED ON 21-JUN-08 STARTED AGAIN ON JUL08
     Dates: start: 20080430
  6. CYTARABINE [Suspect]
     Dosage: 3 COURSES. 1 DF=12G/M2.15-20AUG08 1.6 G/M2 (BEAM THERAPY)  STOPPED ON 21-JUN-08 STARTED ON JUL08
     Dates: start: 20080430
  7. RITUXIMAB [Suspect]
     Dosage: 3 COURSES
     Dates: start: 20080430, end: 20080621

REACTIONS (4)
  - ANAEMIA [None]
  - ENCEPHALOPATHY [None]
  - NEUTROPHIL COUNT DECREASED [None]
  - THROMBOCYTOPENIA [None]
